FAERS Safety Report 21471673 (Version 4)
Quarter: 2023Q2

REPORT INFORMATION
  Report Type: Spontaneous
  Country: US (occurrence: US)
  Receive Date: 20221018
  Receipt Date: 20230622
  Transmission Date: 20230722
  Serious: Yes (Hospitalization, Other)
  Sender: FDA-Public Use
  Company Number: US-PFIZER INC-2019233610

PATIENT
  Age: 52 Year
  Sex: Female

DRUGS (4)
  1. XELJANZ [Suspect]
     Active Substance: TOFACITINIB CITRATE
     Indication: Psoriatic arthropathy
     Dosage: 5 MG, 2X/DAY
     Route: 048
     Dates: start: 20190420, end: 2022
  2. XELJANZ [Suspect]
     Active Substance: TOFACITINIB CITRATE
     Indication: Ankylosing spondylitis
     Dosage: 5 MG, 2X/DAY
     Route: 048
     Dates: start: 20221118, end: 20221223
  3. XELJANZ [Suspect]
     Active Substance: TOFACITINIB CITRATE
     Indication: Rheumatoid arthritis
  4. OTEZLA [Concomitant]
     Active Substance: APREMILAST
     Dosage: UNK

REACTIONS (16)
  - Foot operation [Recovered/Resolved]
  - Deep vein thrombosis [Recovered/Resolved]
  - Squamous cell carcinoma [Not Recovered/Not Resolved]
  - Cervical vertebral fracture [Unknown]
  - Sinusitis [Unknown]
  - Condition aggravated [Unknown]
  - Illness [Unknown]
  - COVID-19 [Recovered/Resolved]
  - Psoriasis [Recovering/Resolving]
  - Nail pitting [Recovering/Resolving]
  - Glucose tolerance impaired [Unknown]
  - Insomnia [Unknown]
  - Paraesthesia [Unknown]
  - Blood cholesterol increased [Recovering/Resolving]
  - Dyspnoea [Unknown]
  - Fall [Unknown]

NARRATIVE: CASE EVENT DATE: 20190101
